FAERS Safety Report 20520760 (Version 1)
Quarter: 2022Q1

REPORT INFORMATION
  Report Type: Spontaneous
  Country: FR (occurrence: FR)
  Receive Date: 20220225
  Receipt Date: 20220225
  Transmission Date: 20220423
  Serious: Yes (Hospitalization)
  Sender: FDA-Public Use
  Company Number: None

PATIENT
  Age: 74 Year
  Sex: Male
  Weight: 89 kg

DRUGS (6)
  1. RAMIPRIL [Suspect]
     Active Substance: RAMIPRIL
     Indication: Cardiovascular event prophylaxis
     Dosage: 1.25 MG
     Route: 048
     Dates: start: 20210928, end: 20211025
  2. RAMIPRIL [Suspect]
     Active Substance: RAMIPRIL
     Dosage: 2.5 MG
     Route: 048
     Dates: start: 20211026, end: 20220114
  3. BISOPROLOL FUMARATE [Suspect]
     Active Substance: BISOPROLOL FUMARATE
     Indication: Cardiovascular event prophylaxis
     Dosage: BISOPROLOL (FUMARATE DE), UNIT DOSE : 2.5 MG
     Route: 048
     Dates: start: 20210928
  4. PANTOPRAZOLE [Suspect]
     Active Substance: PANTOPRAZOLE
     Indication: Prophylaxis against gastrointestinal ulcer
     Dosage: 20 MG
     Route: 048
     Dates: start: 20210928, end: 20220114
  5. KEYTRUDA [Suspect]
     Active Substance: PEMBROLIZUMAB
     Indication: Metastatic malignant melanoma
     Dosage: KEYTRUDA 25 MG/ML, UNIT DOSE : 400 MG
     Route: 041
     Dates: start: 20210422, end: 20210722
  6. KEYTRUDA [Suspect]
     Active Substance: PEMBROLIZUMAB
     Dosage: KEYTRUDA 25 MG/ML, UNIT DOSE : 200 MG
     Route: 041
     Dates: start: 20211014, end: 20211215

REACTIONS (1)
  - Tubulointerstitial nephritis [Not Recovered/Not Resolved]

NARRATIVE: CASE EVENT DATE: 20220104
